FAERS Safety Report 4523242-3 (Version None)
Quarter: 2004Q4

REPORT INFORMATION
  Report Type: 
  Country: None (occurrence: None)
  Receive Date: 20041209
  Receipt Date: 20041209
  Transmission Date: 20050328
  Serious: Yes (Other)
  Sender: FDA-Public Use
  Company Number: None

PATIENT
  Sex: Female
  Weight: 99.7913 kg

DRUGS (5)
  1. CODEINE/APAP (MALLINDKRODT) [Suspect]
     Indication: BACK PAIN
     Dosage: 30/300 2 Q 6 H PRN PO
     Route: 048
     Dates: start: 20041203
  2. CODEINE/APAP (MALLINDKRODT) [Suspect]
     Indication: BACK PAIN
     Dosage: 30/300 2 Q 6 H PRN PO
     Route: 048
     Dates: start: 20041204
  3. DIAZEPAM [Concomitant]
  4. SELENIUM TRACE METAL ADDITIVE [Concomitant]
  5. VITAMIN B COMPLEX CAP [Concomitant]

REACTIONS (4)
  - COUGH [None]
  - DYSPNOEA [None]
  - PHARMACEUTICAL PRODUCT COMPLAINT [None]
  - WHEEZING [None]
